FAERS Safety Report 8793609 (Version 1)
Quarter: 2012Q4

REPORT INFORMATION
  Report Type: Report from Study
  Country: BE (occurrence: BE)
  Receive Date: 20120917
  Receipt Date: 20120917
  Transmission Date: 20130627
  Serious: Yes (Other)
  Sender: FDA-Public Use
  Company Number: BE-GLAXOSMITHKLINE-B0827416A

PATIENT
  Age: 33 Year
  Sex: Female
  Weight: 90 kg

DRUGS (7)
  1. PAZOPANIB [Suspect]
     Indication: SARCOMA METASTATIC
     Dosage: 800MG per day
     Route: 048
     Dates: start: 20120720, end: 20120725
  2. CONTRAMAL [Concomitant]
     Indication: PAIN
     Dosage: 200MG Per day
     Route: 048
     Dates: start: 2011
  3. DAFALGAN [Concomitant]
     Indication: PAIN
     Dosage: 4G Per day
     Route: 048
     Dates: start: 2011
  4. ORGAMETRIL [Concomitant]
     Indication: CONTRACEPTION
     Dosage: 5MG Per day
     Route: 048
     Dates: start: 20120401
  5. REDOMEX [Concomitant]
     Indication: PAIN
     Dosage: 20MG Per day
     Route: 048
     Dates: start: 2011
  6. VOLTAREN RETARD [Concomitant]
     Indication: PAIN
     Dosage: 150MG Per day
     Route: 048
     Dates: start: 2011
  7. ZANTAC [Concomitant]
     Indication: PROPHYLAXIS
     Dosage: 300MG Per day
     Route: 048
     Dates: start: 2011

REACTIONS (4)
  - Somnolence [Recovered/Resolved]
  - Dizziness [Recovered/Resolved]
  - Memory impairment [Recovered/Resolved]
  - Decreased appetite [Recovered/Resolved]
